FAERS Safety Report 7919092-8 (Version None)
Quarter: 2011Q4

REPORT INFORMATION
  Report Type: 
  Country: None (occurrence: None)
  Receive Date: 20111116
  Receipt Date: 20111107
  Transmission Date: 20120403
  Serious: Yes (Hospitalization, Other)
  Sender: FDA-Public Use
  Company Number: US-ASTRAZENECA-2011SE46311

PATIENT
  Age: 21 Year
  Sex: Male
  Weight: 86.2 kg

DRUGS (4)
  1. SEROQUEL XR [Suspect]
     Indication: BIPOLAR DISORDER
     Route: 048
     Dates: start: 20101001, end: 20110501
  2. SEROQUEL XR [Suspect]
     Route: 048
     Dates: start: 20110501, end: 20110601
  3. SEROQUEL XR [Suspect]
     Route: 048
     Dates: start: 20110618, end: 20110701
  4. LAMICTAL [Concomitant]

REACTIONS (5)
  - ANTISOCIAL BEHAVIOUR [None]
  - HOMICIDAL IDEATION [None]
  - DRUG DOSE OMISSION [None]
  - AGGRESSION [None]
  - PSYCHOTIC DISORDER [None]
